FAERS Safety Report 20197261 (Version 2)
Quarter: 2023Q2

REPORT INFORMATION
  Report Type: Report from Study
  Country: CO (occurrence: CO)
  Receive Date: 20211217
  Receipt Date: 20230612
  Transmission Date: 20230722
  Serious: Yes (Death, Hospitalization)
  Sender: FDA-Public Use
  Company Number: CO-JNJFOC-20211024370

PATIENT
  Age: 63 Year
  Sex: Male
  Weight: 60 kg

DRUGS (5)
  1. INVEGA SUSTENNA [Suspect]
     Active Substance: PALIPERIDONE PALMITATE
     Indication: Schizophrenia
     Dosage: DOSE: 100 MG/1ML?LAST APPLICATION WAS ON 16-SEP-2021
     Route: 030
     Dates: start: 20200306
  2. INVEGA SUSTENNA [Suspect]
     Active Substance: PALIPERIDONE PALMITATE
     Indication: Psychotic disorder
  3. INVEGA SUSTENNA [Suspect]
     Active Substance: PALIPERIDONE PALMITATE
  4. RISPERIDONE [Concomitant]
     Active Substance: RISPERIDONE
     Dosage: 2 MG
  5. CLOZAPINE [Concomitant]
     Active Substance: CLOZAPINE
     Dosage: 100 MG

REACTIONS (7)
  - Chronic obstructive pulmonary disease [Fatal]
  - Apnoea [Recovering/Resolving]
  - Gait disturbance [Recovering/Resolving]
  - Fatigue [Recovering/Resolving]
  - Abnormal behaviour [Recovering/Resolving]
  - Anxiety [Recovering/Resolving]
  - Tobacco user [Recovering/Resolving]

NARRATIVE: CASE EVENT DATE: 20210917
